FAERS Safety Report 9430979 (Version 1)
Quarter: 2013Q3

REPORT INFORMATION
  Report Type: Spontaneous
  Country: US (occurrence: US)
  Receive Date: 20130730
  Receipt Date: 20130730
  Transmission Date: 20140515
  Serious: No
  Sender: FDA-Public Use
  Company Number: US-ABBOTT-13P-163-1112633-00

PATIENT
  Age: 70 Year
  Sex: Male
  Weight: 97.16 kg

DRUGS (4)
  1. NIASPAN [Suspect]
     Indication: BLOOD CHOLESTEROL INCREASED
     Route: 048
     Dates: start: 20130521
  2. RAMIPRIL [Concomitant]
     Indication: HYPERTENSION
  3. METFORMIN [Concomitant]
     Indication: DIABETES MELLITUS
  4. ASPIRIN [Concomitant]
     Indication: CARDIAC DISORDER

REACTIONS (3)
  - Faeces discoloured [Not Recovered/Not Resolved]
  - Blood glucose increased [Not Recovered/Not Resolved]
  - Anorectal discomfort [Not Recovered/Not Resolved]
